FAERS Safety Report 9540986 (Version 1)
Quarter: 2013Q3

REPORT INFORMATION
  Report Type: Spontaneous
  Country: US (occurrence: US)
  Receive Date: 20130922
  Receipt Date: 20130922
  Transmission Date: 20140515
  Serious: No
  Sender: FDA-Public Use
  Company Number: US-ALLERGAN-1210815US

PATIENT
  Sex: Female

DRUGS (2)
  1. SANCTURA XR [Suspect]
     Indication: PRODUCT USED FOR UNKNOWN INDICATION
     Dosage: 60 MG, QAM
     Route: 048
     Dates: start: 20120723, end: 20120801
  2. SYNTHROID [Concomitant]
     Indication: PRODUCT USED FOR UNKNOWN INDICATION

REACTIONS (3)
  - Activities of daily living impaired [Recovered/Resolved]
  - Vision blurred [Recovered/Resolved]
  - Somnolence [Recovered/Resolved]
